FAERS Safety Report 5915707-4 (Version None)
Quarter: 2008Q4

REPORT INFORMATION
  Report Type: 
  Country: None (occurrence: None)
  Receive Date: 20081010
  Receipt Date: 20081007
  Transmission Date: 20090506
  Serious: Yes (Death, Other)
  Sender: FDA-Public Use
  Company Number: US-GENENTECH-268971

PATIENT
  Age: 57 Year
  Sex: Male

DRUGS (1)
  1. RITUXAN [Suspect]
     Indication: WALDENSTROM'S MACROGLOBULINAEMIA

REACTIONS (1)
  - PROGRESSIVE MULTIFOCAL LEUKOENCEPHALOPATHY [None]
